FAERS Safety Report 17484363 (Version 1)
Quarter: 2020Q1

REPORT INFORMATION
  Report Type: Spontaneous
  Country: AU (occurrence: AU)
  Receive Date: 20200302
  Receipt Date: 20200302
  Transmission Date: 20200409
  Serious: Yes (Hospitalization, Other)
  Sender: FDA-Public Use
  Company Number: AU-ASTRAZENECA-2020SE29538

PATIENT
  Age: 84 Year
  Sex: Male

DRUGS (11)
  1. ASPIRIN. [Concomitant]
     Active Substance: ASPIRIN
     Dosage: 100MG PER DAY
  2. DIABEX [Concomitant]
     Active Substance: METFORMIN HYDROCHLORIDE
  3. BYDUREON [Suspect]
     Active Substance: EXENATIDE
     Indication: DIABETES MELLITUS
     Route: 065
  4. CADUET [Concomitant]
     Active Substance: AMLODIPINE BESYLATE\ATORVASTATIN CALCIUM
     Dosage: 10/40 PER DAY
  5. OXYBUTYNIN. [Concomitant]
     Active Substance: OXYBUTYNIN CHLORIDE
     Dosage: 5MG PER DAY
  6. DIAMICRON [Concomitant]
     Active Substance: GLICLAZIDE
     Dosage: 60MG PER DAY
  7. MICARDIS [Concomitant]
     Active Substance: TELMISARTAN
     Dosage: 30MG PER DAY
  8. DIAMICRON MR [Concomitant]
     Active Substance: GLICLAZIDE
     Dosage: 60MG PER DAY
  9. ZOLOFT [Concomitant]
     Active Substance: SERTRALINE HYDROCHLORIDE
     Dosage: 50MG PER DAY
  10. NOTEN [Concomitant]
     Active Substance: ATENOLOL
     Dosage: 50MG PER DAY
  11. FORXIGA [Concomitant]
     Active Substance: DAPAGLIFLOZIN
     Dosage: 10MG PER DAY

REACTIONS (3)
  - Blood glucose increased [Unknown]
  - Incorrect dose administered by device [Unknown]
  - Device issue [Unknown]

NARRATIVE: CASE EVENT DATE: 20200223
